FAERS Safety Report 12317281 (Version 1)
Quarter: 2016Q2

REPORT INFORMATION
  Report Type: Spontaneous
  Country: US (occurrence: US)
  Receive Date: 20160429
  Receipt Date: 20160429
  Transmission Date: 20160815
  Serious: No
  Sender: FDA-Public Use
  Company Number: US-PROCTER_AND_GAMBLE-GS16030042

PATIENT
  Age: 47 Year
  Sex: Female
  Weight: 58.5 kg

DRUGS (2)
  1. ZOLPIDEM [Concomitant]
     Active Substance: ZOLPIDEM\ZOLPIDEM TARTRATE
     Indication: INSOMNIA
     Dosage: 10 MG, BEDTIME
     Route: 048
  2. TEXTURENTONESPROFHRCLRBASEPRMLIQBLACKSILKENBLCK1B [Suspect]
     Active Substance: COSMETICS
     Dosage: 1 APPLIC, 1 ONLY
     Route: 061
     Dates: start: 20160306, end: 20160306

REACTIONS (6)
  - Pruritus [Recovering/Resolving]
  - Eye pruritus [Recovering/Resolving]
  - Skin swelling [Recovering/Resolving]
  - Lip swelling [Recovered/Resolved]
  - Swelling face [Recovered/Resolved]
  - Eye swelling [Recovered/Resolved]

NARRATIVE: CASE EVENT DATE: 20160307
